FAERS Safety Report 12368869 (Version 1)
Quarter: 2016Q2

REPORT INFORMATION
  Report Type: Report from Study
  Country: CA (occurrence: CA)
  Receive Date: 20160513
  Receipt Date: 20160513
  Transmission Date: 20160815
  Serious: Yes (Death, Hospitalization, Other)
  Sender: FDA-Public Use
  Company Number: CA-GILEAD-2016-0213720

PATIENT
  Age: 76 Year
  Sex: Male

DRUGS (1)
  1. LEDIPASVIR/SOFOSBUVIR [Suspect]
     Active Substance: LEDIPASVIR\SOFOSBUVIR
     Indication: HEPATITIS C
     Dosage: 1 DF, UNK
     Route: 048
     Dates: start: 20150723

REACTIONS (4)
  - Hepatic cancer [Unknown]
  - General physical health deterioration [Unknown]
  - Death [Fatal]
  - Transplant [Unknown]

NARRATIVE: CASE EVENT DATE: 201509
